FAERS Safety Report 5509267-X (Version None)
Quarter: 2007Q4

REPORT INFORMATION
  Report Type: 
  Country: None (occurrence: None)
  Receive Date: 20071107
  Receipt Date: 20071106
  Transmission Date: 20080405
  Serious: No
  Sender: FDA-Public Use
  Company Number: US-BOEHRINGER INGELHEIM PHARMACEUTICALS, INC.-2007-BP-22124BP

PATIENT

DRUGS (1)
  1. AGGRENOX [Suspect]

REACTIONS (1)
  - ABDOMINAL DISCOMFORT [None]
